FAERS Safety Report 5677811-8 (Version None)
Quarter: 2008Q1

REPORT INFORMATION
  Report Type: 
  Country: None (occurrence: None)
  Receive Date: 20080318
  Receipt Date: 20080207
  Transmission Date: 20080703
  Serious: Yes (Hospitalization)
  Sender: FDA-Public Use
  Company Number: 17531

PATIENT
  Age: 69 Year
  Sex: Male

DRUGS (3)
  1. CYTARABINE [Suspect]
     Indication: ACUTE MYELOID LEUKAEMIA
     Dosage: 160 MG SC
     Route: 058
     Dates: start: 20070728, end: 20070801
  2. EPIRUBICIN [Suspect]
     Indication: ACUTE MYELOID LEUKAEMIA
     Dosage: 70 MG
     Dates: start: 20070728, end: 20070728
  3. DECITABINE [Suspect]
     Indication: ACUTE MYELOID LEUKAEMIA
     Dosage: 20 MG/M2 OTH IV
     Route: 042
     Dates: start: 20060810, end: 20070702

REACTIONS (2)
  - GRANULOCYTOPENIA [None]
  - THROMBOCYTOPENIA [None]
